FAERS Safety Report 16034963 (Version 1)
Quarter: 2019Q1

REPORT INFORMATION
  Report Type: Spontaneous
  Country: US (occurrence: US)
  Receive Date: 20190305
  Receipt Date: 20190305
  Transmission Date: 20190418
  Serious: Yes (Other)
  Sender: FDA-Public Use
  Company Number: US-TEVA-2019-US-1020263

PATIENT
  Age: 83 Year
  Sex: Female

DRUGS (2)
  1. METOPROLOL. [Concomitant]
     Active Substance: METOPROLOL
     Indication: BLOOD PRESSURE MEASUREMENT
     Dosage: 12.5 MILLIGRAM DAILY;
     Dates: end: 201801
  2. WARFARIN SODIUM TEVA [Suspect]
     Active Substance: WARFARIN SODIUM
     Indication: CEREBROVASCULAR ACCIDENT
     Dosage: 2MG TABLET BY MOUTH DAILY, ALTERNATING WITH 3MG DEPENDING ON LEVELS
     Route: 048
     Dates: end: 201701

REACTIONS (3)
  - Haemorrhage [Recovered/Resolved]
  - Contusion [Recovered/Resolved]
  - Haematotoxicity [Recovered/Resolved]

NARRATIVE: CASE EVENT DATE: 201703
